FAERS Safety Report 16701844 (Version 1)
Quarter: 2019Q3

REPORT INFORMATION
  Report Type: Spontaneous
  Country: US (occurrence: US)
  Receive Date: 20190813
  Receipt Date: 20190813
  Transmission Date: 20191004
  Serious: Yes (Other)
  Sender: FDA-Public Use
  Company Number: None

PATIENT
  Age: 6 Year
  Sex: Female
  Weight: 20.7 kg

DRUGS (2)
  1. SMOOTH LAX [Concomitant]
     Active Substance: POLYETHYLENE GLYCOL 3350
     Indication: CONSTIPATION
     Dosage: ?          QUANTITY:3 CAPFULS;OTHER FREQUENCY:2 CAPS IN AM 1 PM;?
     Route: 048
     Dates: start: 20190807, end: 20190813
  2. MIRALAX [Concomitant]
     Active Substance: POLYETHYLENE GLYCOL 3350

REACTIONS (2)
  - Head titubation [None]
  - Tic [None]

NARRATIVE: CASE EVENT DATE: 20190812
